FAERS Safety Report 6550529-5 (Version None)
Quarter: 2010Q1

REPORT INFORMATION
  Report Type: 
  Country: None (occurrence: None)
  Receive Date: 20100125
  Receipt Date: 20100119
  Transmission Date: 20100710
  Serious: Yes (Hospitalization)
  Sender: FDA-Public Use
  Company Number: B0626986A

PATIENT
  Sex: Female

DRUGS (4)
  1. CLAMOXYL [Suspect]
     Route: 048
     Dates: start: 20091023, end: 20091027
  2. IBUPROFEN [Suspect]
     Indication: HEADACHE
     Route: 048
     Dates: start: 20091015, end: 20091018
  3. EFFERALGAN [Suspect]
     Route: 048
     Dates: start: 20091023, end: 20091027
  4. DIMETANE [Suspect]
     Indication: DRUG USE FOR UNKNOWN INDICATION
     Route: 048
     Dates: start: 20091023, end: 20091027

REACTIONS (3)
  - AGRANULOCYTOSIS [None]
  - BONE MARROW MYELOGRAM ABNORMAL [None]
  - NEUTROPENIA [None]
